FAERS Safety Report 9742624 (Version 1)
Quarter: 2013Q4

REPORT INFORMATION
  Report Type: Spontaneous
  Country: US (occurrence: US)
  Receive Date: 20131210
  Receipt Date: 20131210
  Transmission Date: 20140711
  Serious: No
  Sender: FDA-Public Use
  Company Number: US-GILEAD-2009-0024734

PATIENT
  Sex: Female
  Weight: 99.79 kg

DRUGS (19)
  1. LETAIRIS [Suspect]
     Indication: PULMONARY ARTERIAL HYPERTENSION
     Route: 048
     Dates: start: 20081219
  2. TORSEMIDE [Concomitant]
  3. ACETAZOLAMIDE [Concomitant]
  4. RAMIPRIL [Concomitant]
  5. REPLIVA 21-7 [Concomitant]
  6. HYDROCHLORATHIAZIDE 25 [Concomitant]
  7. XALATAN 0.005% [Concomitant]
  8. LASIX [Concomitant]
  9. TRICOR [Concomitant]
  10. LESCOL [Concomitant]
  11. METAGLIP 5/500 [Concomitant]
  12. LEVEMIR [Concomitant]
  13. ASPIRIN [Concomitant]
  14. LEVOXYL [Concomitant]
  15. CENTRUM [Concomitant]
  16. DILTIAZEM [Concomitant]
  17. TOPROL XL [Concomitant]
  18. CALCIUM [Concomitant]
  19. OXYGEN [Concomitant]

REACTIONS (3)
  - Pruritus [Unknown]
  - Restless legs syndrome [Unknown]
  - Fluid retention [Unknown]
